FAERS Safety Report 22283917 (Version 2)
Quarter: 2023Q2

REPORT INFORMATION
  Report Type: Report from Study
  Country: US (occurrence: US)
  Receive Date: 20230504
  Receipt Date: 20230510
  Transmission Date: 20230721
  Serious: No
  Sender: FDA-Public Use
  Company Number: US-002147023-NVSC2023US097733

PATIENT
  Sex: Female
  Weight: 61.23 kg

DRUGS (4)
  1. BETAMETHASONE [Suspect]
     Active Substance: BETAMETHASONE
     Indication: Psoriasis
     Dosage: UNK, BID (ON WEEKENDS ONLY)
     Route: 065
  2. MUPIROCIN [Suspect]
     Active Substance: MUPIROCIN
     Indication: Psoriasis
     Dosage: UNK (5X PER WEEK EACH MONTH)
     Route: 045
  3. CALCIPOTRIENE [Suspect]
     Active Substance: CALCIPOTRIENE
     Indication: Psoriasis
     Dosage: UNK, BID (M-F)
     Route: 065
  4. VITAMIN D NOS [Suspect]
     Active Substance: VITAMIN D NOS
     Indication: Psoriasis
     Dosage: UNK (START DATE:04 MAR)
     Route: 065

REACTIONS (6)
  - Arthralgia [Unknown]
  - Psoriasis [Unknown]
  - Blister [Unknown]
  - Hyperkeratosis [Unknown]
  - Pustule [Unknown]
  - Drug ineffective [Unknown]
